FAERS Safety Report 8399259 (Version 4)
Quarter: 2013Q1

REPORT INFORMATION
  Report Type: Spontaneous
  Country: US (occurrence: US)
  Receive Date: 20120210
  Receipt Date: 20130125
  Transmission Date: 20140127
  Serious: Yes (Other)
  Sender: FDA-Public Use
  Company Number: US-PFIZER INC-2012033650

PATIENT
  Age: 81 Year
  Sex: Female
  Weight: 63.49 kg

DRUGS (8)
  1. LIPITOR [Suspect]
     Dosage: UNK
  2. LYRICA [Suspect]
     Indication: PAIN
     Dosage: UNK, 3X/DAY
  3. LYRICA [Suspect]
     Indication: SPINAL COLUMN STENOSIS
  4. ATORVASTATIN CALCIUM [Suspect]
     Indication: BLOOD CHOLESTEROL INCREASED
     Dosage: UNK
  5. LOSARTAN [Suspect]
     Dosage: 50 MG, UNK
  6. ATORVASTATIN CALCIUM [Suspect]
     Dosage: 20 MG, UNK
     Route: 048
     Dates: start: 20120118
  7. CARVEDILOL [Concomitant]
     Indication: CARDIAC DISORDER
     Dosage: UNK
  8. CARVEDILOL [Concomitant]
     Indication: CARDIAC DISORDER
     Dosage: UNK, 2X/DAY

REACTIONS (10)
  - Osteoarthritis [Unknown]
  - Myalgia [Unknown]
  - Hypoaesthesia [Not Recovered/Not Resolved]
  - Paraesthesia [Unknown]
  - Arthralgia [Recovered/Resolved]
  - Pain in extremity [Unknown]
  - Malaise [Unknown]
  - Somnolence [Unknown]
  - Memory impairment [Unknown]
  - Oedema peripheral [Unknown]
